FAERS Safety Report 11274810 (Version 3)
Quarter: 2016Q1

REPORT INFORMATION
  Report Type: Spontaneous
  Country: JP (occurrence: JP)
  Receive Date: 20150716
  Receipt Date: 20160322
  Transmission Date: 20160525
  Serious: Yes (Hospitalization)
  Sender: FDA-Public Use
  Company Number: JP-ROCHE-1608543

PATIENT
  Age: 50 Year
  Sex: Female
  Weight: 49 kg

DRUGS (9)
  1. PROGRAF [Concomitant]
     Active Substance: TACROLIMUS\TACROLIMUS ANHYDROUS
     Indication: CASTLEMAN^S DISEASE
     Route: 048
     Dates: start: 20120614, end: 20150507
  2. ACTEMRA [Suspect]
     Active Substance: TOCILIZUMAB
     Dosage: MOST RECENT DOSE WAS GIVEN ON 01/JUN/2015
     Route: 041
     Dates: start: 20101209, end: 20110407
  3. ACTEMRA [Suspect]
     Active Substance: TOCILIZUMAB
     Dosage: MOST RECENT DOSE WAS GIVEN ON 01/JUN/2015
     Route: 041
     Dates: start: 20130829, end: 20140904
  4. ACTEMRA [Suspect]
     Active Substance: TOCILIZUMAB
     Dosage: MOST RECENT DOSE WAS GIVEN ON 01/JUN/2015
     Route: 041
     Dates: start: 20110407, end: 20120105
  5. ACTEMRA [Suspect]
     Active Substance: TOCILIZUMAB
     Dosage: MOST RECENT DOSE WAS GIVEN ON 01/JUN/2015
     Route: 041
     Dates: start: 20120704, end: 20130829
  6. ACTEMRA [Suspect]
     Active Substance: TOCILIZUMAB
     Dosage: MOST RECENT DOSE WAS GIVEN ON 01/JUN/2015
     Route: 041
     Dates: start: 20140904, end: 20150625
  7. ACTEMRA [Suspect]
     Active Substance: TOCILIZUMAB
     Indication: CASTLEMAN^S DISEASE
     Dosage: MOST RECENT DOSE WAS GIVEN ON 01/JUN/2015
     Route: 041
     Dates: start: 20090728, end: 20100107
  8. ACTEMRA [Suspect]
     Active Substance: TOCILIZUMAB
     Dosage: MOST RECENT DOSE WAS GIVEN ON 01/JUN/2015
     Route: 041
     Dates: start: 20100107, end: 20101209
  9. ACTEMRA [Suspect]
     Active Substance: TOCILIZUMAB
     Dosage: MOST RECENT DOSE WAS GIVEN ON 01/JUN/2015
     Route: 041
     Dates: start: 20120105, end: 20120704

REACTIONS (1)
  - Condition aggravated [Recovering/Resolving]

NARRATIVE: CASE EVENT DATE: 20150702
